FAERS Safety Report 21370845 (Version 1)
Quarter: 2022Q3

REPORT INFORMATION
  Report Type: Spontaneous
  Country: IN (occurrence: None)
  Receive Date: 20220923
  Receipt Date: 20220923
  Transmission Date: 20221027
  Serious: Yes (Life-Threatening, Hospitalization, Other)
  Sender: FDA-Public Use
  Company Number: 2022A327637

PATIENT
  Sex: Male

DRUGS (2)
  1. BRILINTA [Suspect]
     Active Substance: TICAGRELOR
     Indication: Percutaneous coronary intervention
     Route: 048
     Dates: start: 20220524, end: 20220722
  2. BRILINTA [Concomitant]
     Active Substance: TICAGRELOR
     Indication: Percutaneous coronary intervention
     Route: 048
     Dates: start: 20220524, end: 20220722

REACTIONS (1)
  - Vascular stent thrombosis [Not Recovered/Not Resolved]

NARRATIVE: CASE EVENT DATE: 20220722
